FAERS Safety Report 16033595 (Version 1)
Quarter: 2019Q1

REPORT INFORMATION
  Report Type: Spontaneous
  Country: US (occurrence: US)
  Receive Date: 20190305
  Receipt Date: 20190305
  Transmission Date: 20190418
  Serious: No
  Sender: FDA-Public Use
  Company Number: US-IMPAX LABORATORIES, LLC-2018-IPXL-02434

PATIENT
  Age: 71 Year
  Sex: Male
  Weight: 123 kg

DRUGS (2)
  1. MIRAPEX [Concomitant]
     Active Substance: PRAMIPEXOLE DIHYDROCHLORIDE
     Indication: PRODUCT USED FOR UNKNOWN INDICATION
     Dosage: UNK, 1 /DAY
     Route: 065
  2. RYTARY [Suspect]
     Active Substance: CARBIDOPA\LEVODOPA
     Indication: PARKINSON^S DISEASE
     Dosage: UNK, ONE CAPSULE A DAY (FOR 1 WEEK)
     Route: 065
     Dates: start: 2017

REACTIONS (2)
  - Drug effect incomplete [Unknown]
  - Accidental underdose [Unknown]
